FAERS Safety Report 12250000 (Version 1)
Quarter: 2016Q2

REPORT INFORMATION
  Report Type: Report from Study
  Country: US (occurrence: US)
  Receive Date: 20160408
  Receipt Date: 20160408
  Transmission Date: 20160815
  Serious: Yes (Hospitalization)
  Sender: FDA-Public Use
  Company Number: US-BAYER-2016-060949

PATIENT
  Age: 36 Year
  Sex: Female

DRUGS (3)
  1. DECITABINE. [Concomitant]
     Active Substance: DECITABINE
  2. NEXAVAR [Suspect]
     Active Substance: SORAFENIB
     Indication: REMISSION NOT ACHIEVED
     Dosage: 400 MG, BID
     Route: 048
     Dates: start: 201602
  3. NEXAVAR [Suspect]
     Active Substance: SORAFENIB
     Indication: ACUTE MYELOID LEUKAEMIA
     Dosage: 200 MG, BID
     Route: 048
     Dates: start: 201601

REACTIONS (4)
  - Menorrhagia [Not Recovered/Not Resolved]
  - Nausea [Not Recovered/Not Resolved]
  - Off label use [None]
  - Menstrual disorder [None]

NARRATIVE: CASE EVENT DATE: 20160108
